FAERS Safety Report 5148970-0 (Version None)
Quarter: 2006Q4

REPORT INFORMATION
  Report Type: 
  Country: None (occurrence: None)
  Receive Date: 20061108
  Receipt Date: 20061024
  Transmission Date: 20070319
  Serious: Yes (Hospitalization)
  Sender: FDA-Public Use
  Company Number: 2006PV022637

PATIENT
  Age: 67 Year
  Sex: Male
  Weight: 113.8529 kg

DRUGS (22)
  1. BYETTA [Suspect]
     Indication: DIABETES MELLITUS NON-INSULIN-DEPENDENT
     Dosage: 10 MCG;BID;SC; 5 MCG;BID;SC
     Route: 058
     Dates: start: 20060925
  2. LANTUS [Concomitant]
  3. METFORMIN [Concomitant]
  4. PREDNISONE TAB [Concomitant]
  5. PROTONIX [Concomitant]
  6. ACCOLATE [Concomitant]
  7. SPIRONOLACTONE [Concomitant]
  8. AVAPRO [Concomitant]
  9. LASIX [Concomitant]
  10. VYTORIN [Concomitant]
  11. GABAPENTIN [Concomitant]
  12. CARDIZEM [Concomitant]
  13. ZIAC HCT [Concomitant]
  14. SYNTHROID [Concomitant]
  15. XANAX [Concomitant]
  16. SAW PALMETTO [Concomitant]
  17. VITAMIN E [Concomitant]
  18. ASCORBIC ACID [Concomitant]
  19. ASPIRIN [Concomitant]
  20. MULTIPLE VITAMIN [Concomitant]
  21. MORPHINE [Concomitant]
  22. LORTAB [Concomitant]

REACTIONS (8)
  - COR PULMONALE [None]
  - FLUID RETENTION [None]
  - HYPERTENSION [None]
  - LETHARGY [None]
  - PNEUMONIA [None]
  - RESPIRATORY FAILURE [None]
  - SENSATION OF HEAVINESS [None]
  - WEIGHT FLUCTUATION [None]
